FAERS Safety Report 11753783 (Version 4)
Quarter: 2016Q1

REPORT INFORMATION
  Report Type: Spontaneous
  Country: US (occurrence: US)
  Receive Date: 20151119
  Receipt Date: 20160211
  Transmission Date: 20160525
  Serious: Yes (Other)
  Sender: FDA-Public Use
  Company Number: US-ROCHE-1663275

PATIENT
  Age: 70 Year
  Sex: Male

DRUGS (10)
  1. WARFARIN [Concomitant]
     Active Substance: WARFARIN
     Route: 048
  2. AMLODIPINE BESYLATE. [Concomitant]
     Active Substance: AMLODIPINE BESYLATE
  3. ESBRIET [Interacting]
     Active Substance: PIRFENIDONE
     Dosage: 9 PILLS PER DAY
     Route: 048
  4. FINASTERIDE. [Concomitant]
     Active Substance: FINASTERIDE
  5. ESBRIET [Suspect]
     Active Substance: PIRFENIDONE
     Indication: IDIOPATHIC PULMONARY FIBROSIS
     Route: 048
     Dates: start: 201509
  6. ESBRIET [Interacting]
     Active Substance: PIRFENIDONE
     Dosage: .
     Route: 048
     Dates: start: 20151008
  7. WARFARIN [Concomitant]
     Active Substance: WARFARIN
     Route: 048
  8. TAMSULOSIN [Concomitant]
     Active Substance: TAMSULOSIN
  9. CITALOPRAM [Concomitant]
     Active Substance: CITALOPRAM HYDROBROMIDE
  10. ATORVASTATIN [Concomitant]
     Active Substance: ATORVASTATIN

REACTIONS (4)
  - Photosensitivity reaction [Not Recovered/Not Resolved]
  - Drug interaction [Not Recovered/Not Resolved]
  - International normalised ratio decreased [Not Recovered/Not Resolved]
  - International normalised ratio fluctuation [Not Recovered/Not Resolved]

NARRATIVE: CASE EVENT DATE: 201509
